FAERS Safety Report 8110959-7 (Version None)
Quarter: 2012Q1

REPORT INFORMATION
  Report Type: 
  Country: None (occurrence: None)
  Receive Date: 20120203
  Receipt Date: 20110103
  Transmission Date: 20120608
  Serious: No
  Sender: FDA-Public Use
  Company Number: US-GLAXOSMITHKLINE-A0904559A

PATIENT
  Age: 28 Year
  Sex: Male
  Weight: 62.7 kg

DRUGS (3)
  1. LORAZEPAM [Suspect]
     Indication: ANXIETY
     Dosage: .5MG THREE TIMES PER DAY
     Route: 048
     Dates: start: 20100601
  2. LAMICTAL [Suspect]
     Dosage: 200MG UNKNOWN
     Route: 048
  3. LITHIUM CARBONATE [Suspect]
     Indication: DEPRESSION
     Dosage: 600MG TWICE PER DAY
     Route: 048
     Dates: start: 20100601

REACTIONS (4)
  - DRUG INTERACTION [None]
  - DRUG SCREEN FALSE POSITIVE [None]
  - AMNESIA [None]
  - CLUMSINESS [None]
